FAERS Safety Report 5033984-1 (Version None)
Quarter: 2006Q2

REPORT INFORMATION
  Report Type: 
  Country: None (occurrence: None)
  Receive Date: 20060626
  Receipt Date: 20060601
  Transmission Date: 20061013
  Serious: Yes (Hospitalization, Other)
  Sender: FDA-Public Use
  Company Number: 2006SE03089

PATIENT
  Age: 76 Year
  Sex: Male

DRUGS (5)
  1. METOPROLOL SUCCINATE [Suspect]
     Indication: ESSENTIAL HYPERTENSION
     Route: 048
     Dates: end: 20060414
  2. NITROMEX [Concomitant]
     Route: 060
  3. LASIX [Concomitant]
  4. TROMBYL [Concomitant]
  5. MICARDIS [Concomitant]

REACTIONS (4)
  - ARRHYTHMIA [None]
  - ELECTROCARDIOGRAM CHANGE [None]
  - FATIGUE [None]
  - SYNCOPE [None]
